FAERS Safety Report 5224332-2 (Version None)
Quarter: 2007Q1

REPORT INFORMATION
  Report Type: 
  Country: None (occurrence: None)
  Receive Date: 20070130
  Receipt Date: 20070122
  Transmission Date: 20070707
  Serious: Yes (Other)
  Sender: FDA-Public Use
  Company Number: NL-BOEHRINGER INGELHEIM PHARMACEUTICALS, INC.-2007-BP-01374YA

PATIENT
  Sex: Male
  Weight: 73 kg

DRUGS (1)
  1. OMNIC CAPSULES [Suspect]
     Indication: BENIGN PROSTATIC HYPERPLASIA
     Route: 048
     Dates: start: 20060526, end: 20060725

REACTIONS (2)
  - DEPRESSION [None]
  - SUICIDAL IDEATION [None]
